FAERS Safety Report 20617666 (Version 1)
Quarter: 2022Q1

REPORT INFORMATION
  Report Type: Spontaneous
  Country: US (occurrence: US)
  Receive Date: 20220321
  Receipt Date: 20220321
  Transmission Date: 20220423
  Serious: No
  Sender: FDA-Public Use
  Company Number: US-TEVA-2022-US-2012560

PATIENT
  Age: 67 Year
  Sex: Female

DRUGS (1)
  1. AUSTEDO [Suspect]
     Active Substance: DEUTETRABENAZINE
     Dosage: 2 WEEK DURATION
     Route: 065

REACTIONS (4)
  - Nausea [Unknown]
  - Anxiety [Unknown]
  - Pallor [Unknown]
  - Feeling abnormal [Unknown]
